FAERS Safety Report 14622174 (Version 1)
Quarter: 2018Q1

REPORT INFORMATION
  Report Type: Spontaneous
  Country: US (occurrence: US)
  Receive Date: 20180311
  Receipt Date: 20180311
  Transmission Date: 20180509
  Serious: No
  Sender: FDA-Public Use
  Company Number: US-JNJFOC-20150705342

PATIENT
  Sex: Male

DRUGS (4)
  1. TRAMADOL IR [Suspect]
     Active Substance: TRAMADOL
     Indication: PAIN
     Route: 048
  2. TRAMADOL IR [Suspect]
     Active Substance: TRAMADOL
     Indication: PAIN
     Dosage: 50 MG FOUR TIMES A DAY
     Route: 048
  3. ALLOPURINOL. [Concomitant]
     Active Substance: ALLOPURINOL
     Indication: GOUT
     Dosage: STARTED IN 2006 OR 2007
     Route: 065
  4. LYRICA [Concomitant]
     Active Substance: PREGABALIN
     Indication: PAIN IN EXTREMITY
     Route: 065
     Dates: end: 201710

REACTIONS (2)
  - Pruritus generalised [Recovered/Resolved]
  - Urticaria [Recovered/Resolved]
